FAERS Safety Report 4464918-6 (Version None)
Quarter: 2004Q4

REPORT INFORMATION
  Report Type: 
  Country: None (occurrence: None)
  Receive Date: 20041004
  Receipt Date: 20040218
  Transmission Date: 20050328
  Serious: No
  Sender: FDA-Public Use
  Company Number: 361790

PATIENT
  Sex: Male

DRUGS (1)
  1. COREG [Suspect]
     Indication: ILL-DEFINED DISORDER
     Route: 048
     Dates: end: 20040218

REACTIONS (1)
  - WHEEZING [None]
